FAERS Safety Report 17350440 (Version 1)
Quarter: 2020Q1

REPORT INFORMATION
  Report Type: Spontaneous
  Country: JP (occurrence: JP)
  Receive Date: 20200130
  Receipt Date: 20200130
  Transmission Date: 20200409
  Serious: Yes (Other)
  Sender: FDA-Public Use
  Company Number: JP-MALLINCKRODT-T202000392

PATIENT
  Weight: 1 kg

DRUGS (2)
  1. INOFLO [Suspect]
     Active Substance: NITRIC OXIDE
     Indication: NEONATAL ASPHYXIA
  2. INOFLO [Suspect]
     Active Substance: NITRIC OXIDE
     Indication: NEONATAL RESPIRATORY DISTRESS SYNDROME
     Dosage: UNK, PER INHALATION
     Route: 055

REACTIONS (5)
  - Vascular pseudoaneurysm ruptured [Recovered/Resolved]
  - Sepsis [Unknown]
  - Shock haemorrhagic [Recovered/Resolved]
  - Bacillus infection [Unknown]
  - Product use issue [Unknown]
